FAERS Safety Report 5753129-X (Version None)
Quarter: 2008Q2

REPORT INFORMATION
  Report Type: 
  Country: None (occurrence: None)
  Receive Date: 20080527
  Receipt Date: 20080508
  Transmission Date: 20081010
  Serious: Yes (Other)
  Sender: FDA-Public Use
  Company Number: 8032643

PATIENT
  Age: 33 Year
  Sex: Female

DRUGS (4)
  1. PREDNISOLONE [Suspect]
     Indication: UVEITIS
  2. METFORMIN HCL [Suspect]
     Indication: DIABETES MELLITUS
     Dosage: 1 G 2/D PO
     Route: 048
  3. ACTOS [Suspect]
     Indication: DIABETES MELLITUS
     Dosage: 45 MG 1/D
  4. INSULIN [Concomitant]

REACTIONS (7)
  - ANEURYSM [None]
  - DIABETES MELLITUS INADEQUATE CONTROL [None]
  - INFLAMMATION [None]
  - MACULAR OEDEMA [None]
  - RETINAL ANEURYSM [None]
  - RETINAL EXUDATES [None]
  - UVEITIS [None]
